FAERS Safety Report 14832315 (Version 2)
Quarter: 2019Q3

REPORT INFORMATION
  Report Type: Spontaneous
  Country: US (occurrence: US)
  Receive Date: 20180501
  Receipt Date: 20190726
  Transmission Date: 20191004
  Serious: Yes (Death, Hospitalization, Other)
  Sender: FDA-Public Use
  Company Number: US-ASTRAZENECA-2018SE57946

PATIENT
  Sex: Male
  Weight: 114 kg

DRUGS (51)
  1. ZETIA [Concomitant]
     Active Substance: EZETIMIBE
  2. METFORMIN [Concomitant]
     Active Substance: METFORMIN HYDROCHLORIDE
  3. HYDROCODONE BITARTRATE AND ACETAMINOPHEN [Concomitant]
     Active Substance: ACETAMINOPHEN\HYDROCODONE BITARTRATE
  4. DUONEB [Concomitant]
     Active Substance: ALBUTEROL SULFATE\IPRATROPIUM BROMIDE
  5. ASPIRIN. [Concomitant]
     Active Substance: ASPIRIN
  6. ATENOLOL. [Concomitant]
     Active Substance: ATENOLOL
  7. MELATONIN [Concomitant]
     Active Substance: MELATONIN
  8. VANCOMYCIN [Concomitant]
     Active Substance: VANCOMYCIN
  9. VIMOVO [Suspect]
     Active Substance: ESOMEPRAZOLE MAGNESIUM\NAPROXEN
     Dosage: UNK
     Route: 048
     Dates: start: 1990, end: 2017
  10. ACIPHEX [Suspect]
     Active Substance: RABEPRAZOLE SODIUM
     Dosage: UNK
     Route: 065
     Dates: start: 1990, end: 2017
  11. HYDROXYCHLOROQUINE [Concomitant]
     Active Substance: HYDROXYCHLOROQUINE
  12. ATENOLOL. [Concomitant]
     Active Substance: ATENOLOL
  13. QUINAPRIL. [Concomitant]
     Active Substance: QUINAPRIL
  14. LORAZEPAM. [Concomitant]
     Active Substance: LORAZEPAM
  15. ADALIMUMAB [Concomitant]
     Active Substance: ADALIMUMAB
  16. QUETIAPINE. [Concomitant]
     Active Substance: QUETIAPINE
  17. SERTRALINE [Concomitant]
     Active Substance: SERTRALINE HYDROCHLORIDE
  18. PRILOSEC [Suspect]
     Active Substance: OMEPRAZOLE MAGNESIUM
     Dosage: UNK
     Route: 048
     Dates: start: 1990, end: 2017
  19. PROTONIX [Suspect]
     Active Substance: PANTOPRAZOLE SODIUM
     Dosage: UNK
     Route: 065
     Dates: start: 2009, end: 2017
  20. AVANDAMET [Concomitant]
     Active Substance: METFORMIN HYDROCHLORIDE\ROSIGLITAZONE MALEATE
  21. FENOFIBRATE. [Concomitant]
     Active Substance: FENOFIBRATE
  22. PROTONIX [Suspect]
     Active Substance: PANTOPRAZOLE SODIUM
     Dosage: UNK
     Route: 065
     Dates: start: 1990, end: 2017
  23. BYETTA [Concomitant]
     Active Substance: EXENATIDE
  24. PROMETHAZINE [Concomitant]
     Active Substance: PROMETHAZINE HYDROCHLORIDE
  25. PRILOSEC [Suspect]
     Active Substance: OMEPRAZOLE MAGNESIUM
     Route: 048
  26. INSULIN [Concomitant]
     Active Substance: INSULIN NOS
  27. NEXIUM [Suspect]
     Active Substance: ESOMEPRAZOLE MAGNESIUM
     Dosage: UNK
     Route: 048
     Dates: start: 1990, end: 2017
  28. NEXIUM 24HR [Suspect]
     Active Substance: ESOMEPRAZOLE MAGNESIUM
     Dosage: UNK
     Route: 048
     Dates: start: 1990, end: 2017
  29. PREVACID [Suspect]
     Active Substance: LANSOPRAZOLE
     Dosage: UNK
     Route: 065
     Dates: start: 1990, end: 2017
  30. PREVACID 24 HR [Suspect]
     Active Substance: LANSOPRAZOLE
     Dosage: UNK
     Route: 065
     Dates: start: 1990, end: 2017
  31. LIPITOR [Concomitant]
     Active Substance: ATORVASTATIN CALCIUM
  32. TRICOR [Concomitant]
     Active Substance: FENOFIBRATE
  33. NAPROXEN. [Concomitant]
     Active Substance: NAPROXEN
  34. HUMALOG [Concomitant]
     Active Substance: INSULIN LISPRO
  35. HUMIRA [Concomitant]
     Active Substance: ADALIMUMAB
  36. FOLATE [Concomitant]
     Active Substance: FOLATE SODIUM
  37. ATENOLOL. [Concomitant]
     Active Substance: ATENOLOL
  38. FOLIC ACID. [Concomitant]
     Active Substance: FOLIC ACID
  39. CARVEDILOL. [Concomitant]
     Active Substance: CARVEDILOL
  40. PRILOSEC [Suspect]
     Active Substance: OMEPRAZOLE MAGNESIUM
     Dosage: UNK
     Route: 048
     Dates: start: 2009, end: 2017
  41. PRILOSEC OTC [Suspect]
     Active Substance: OMEPRAZOLE MAGNESIUM
     Dosage: UNK
     Route: 048
     Dates: start: 1990, end: 2017
  42. DEXILANT [Suspect]
     Active Substance: DEXLANSOPRAZOLE
     Dosage: UNK
     Route: 065
     Dates: start: 1990, end: 2017
  43. PREVACID [Suspect]
     Active Substance: LANSOPRAZOLE
     Dosage: UNK
     Route: 065
     Dates: start: 2009, end: 2017
  44. PREVACID [Suspect]
     Active Substance: LANSOPRAZOLE
     Route: 048
     Dates: start: 20170427, end: 20170428
  45. PROTONIX [Suspect]
     Active Substance: PANTOPRAZOLE SODIUM
     Route: 065
     Dates: start: 20100129
  46. PREDNISONE. [Concomitant]
     Active Substance: PREDNISONE
  47. LEVEMIR [Concomitant]
     Active Substance: INSULIN DETEMIR
  48. PLAQUENIL [Concomitant]
     Active Substance: HYDROXYCHLOROQUINE SULFATE
  49. MOTRIN [Concomitant]
     Active Substance: IBUPROFEN
  50. ATORVASTATIN [Concomitant]
     Active Substance: ATORVASTATIN
  51. CALCIUM CARBONATE. [Concomitant]
     Active Substance: CALCIUM CARBONATE

REACTIONS (5)
  - Chronic kidney disease [Unknown]
  - End stage renal disease [Unknown]
  - Acute kidney injury [Unknown]
  - Death [Fatal]
  - Renal failure [Unknown]
